FAERS Safety Report 6186943-X (Version None)
Quarter: 2009Q2

REPORT INFORMATION
  Report Type: 
  Country: None (occurrence: None)
  Receive Date: 20090508
  Receipt Date: 20090421
  Transmission Date: 20091009
  Serious: Yes (Death)
  Sender: FDA-Public Use
  Company Number: ADE# 09-104DPR

PATIENT
  Age: 85 Year
  Sex: Male

DRUGS (6)
  1. DIGOXIN [Suspect]
     Indication: HEART RATE IRREGULAR
     Dates: start: 20080905
  2. AVELOX [Concomitant]
  3. LEVOTHYROXINE SODIUM [Concomitant]
  4. METOPROLOL SUCCINATE [Concomitant]
  5. PREDNISONE [Concomitant]
  6. MIRTAZAPINE [Concomitant]

REACTIONS (4)
  - CARDIOVASCULAR DISORDER [None]
  - OXYGEN SATURATION DECREASED [None]
  - RESPIRATORY DISORDER [None]
  - URINARY TRACT INFECTION [None]
